FAERS Safety Report 11436207 (Version 1)
Quarter: 2015Q3

REPORT INFORMATION
  Report Type: Spontaneous
  Country: US (occurrence: US)
  Receive Date: 20150821
  Receipt Date: 20150821
  Transmission Date: 20151125
  Serious: No
  Sender: FDA-Public Use
  Company Number: US-ELI_LILLY_AND_COMPANY-US201402005414

PATIENT
  Age: 94 Year
  Sex: Male
  Weight: 77.1 kg

DRUGS (4)
  1. CIALIS [Suspect]
     Active Substance: TADALAFIL
     Indication: ERECTILE DYSFUNCTION
     Dosage: 2.5 MG, QD
     Route: 048
     Dates: start: 201312, end: 201401
  2. METFORMIN [Concomitant]
     Active Substance: METFORMIN HYDROCHLORIDE
     Dosage: 1 DF, UNKNOWN
  3. LIPITOR [Concomitant]
     Active Substance: ATORVASTATIN CALCIUM
     Dosage: 1 DF, UNKNOWN
  4. CIALIS [Suspect]
     Active Substance: TADALAFIL
     Indication: BENIGN PROSTATIC HYPERPLASIA
     Dosage: 5 MG, QD
     Route: 048
     Dates: start: 20140112, end: 20140207

REACTIONS (3)
  - Lip swelling [Not Recovered/Not Resolved]
  - Drug ineffective [Unknown]
  - Lip pain [Not Recovered/Not Resolved]

NARRATIVE: CASE EVENT DATE: 20140112
